FAERS Safety Report 19785975 (Version 1)
Quarter: 2021Q3

REPORT INFORMATION
  Report Type: Spontaneous
  Country: BR (occurrence: BR)
  Receive Date: 20210903
  Receipt Date: 20210903
  Transmission Date: 20211014
  Serious: Yes (Life-Threatening, Hospitalization)
  Sender: FDA-Public Use
  Company Number: NVSC2021BR199932

PATIENT
  Age: 6 Year

DRUGS (1)
  1. PREDNISOLONE. [Suspect]
     Active Substance: PREDNISOLONE
     Indication: PRODUCT USED FOR UNKNOWN INDICATION
     Dosage: 1 MG/KG/DAY
     Route: 065

REACTIONS (4)
  - Mouth haemorrhage [Unknown]
  - Blood urine present [Unknown]
  - Thrombocytopenia [Unknown]
  - Tonsillar haemorrhage [Unknown]
